FAERS Safety Report 6678140-6 (Version None)
Quarter: 2010Q2

REPORT INFORMATION
  Report Type: 
  Country: None (occurrence: None)
  Receive Date: 20100409
  Receipt Date: 20100409
  Transmission Date: 20101027
  Serious: Yes (Death)
  Sender: FDA-Public Use
  Company Number: None

PATIENT
  Age: 90 Year
  Sex: Male

DRUGS (9)
  1. REVLIMID [Suspect]
     Indication: MULTIPLE MYELOMA
     Dosage: 15MG DAILY FOR 21 DAYS ORALLY
     Route: 048
     Dates: start: 20081024, end: 20090928
  2. IMODIUM A-D [Concomitant]
  3. FUROSEMIDE [Concomitant]
  4. METOPROLOL TARTRATE [Concomitant]
  5. DOCUSATE [Concomitant]
  6. HYDROCODONE BITARTRATE AND ACETAMINOPHEN [Concomitant]
  7. LISINOPRIL [Concomitant]
  8. DEXAMETHASONE [Concomitant]
  9. L [Concomitant]

REACTIONS (6)
  - DYSPHAGIA [None]
  - FATIGUE [None]
  - INCONTINENCE [None]
  - MALIGNANT NEOPLASM PROGRESSION [None]
  - MULTIPLE MYELOMA [None]
  - PAIN [None]
